FAERS Safety Report 6794435-X (Version None)
Quarter: 2010Q2

REPORT INFORMATION
  Report Type: 
  Country: None (occurrence: None)
  Receive Date: 20100625
  Receipt Date: 20100617
  Transmission Date: 20101027
  Serious: No
  Sender: FDA-Public Use
  Company Number: 2009BI042009

PATIENT
  Sex: Male

DRUGS (3)
  1. TYSABRI [Suspect]
     Indication: MULTIPLE SCLEROSIS
     Route: 042
     Dates: start: 20050101, end: 20050101
  2. TYSABRI [Suspect]
     Route: 042
     Dates: start: 20070205, end: 20090101
  3. TYSABRI [Suspect]
     Route: 042
     Dates: start: 20100501

REACTIONS (5)
  - BLADDER DISORDER [None]
  - MOBILITY DECREASED [None]
  - MUSCLE SPASMS [None]
  - MUSCLE SPASTICITY [None]
  - NASOPHARYNGITIS [None]
